FAERS Safety Report 14372162 (Version 2)
Quarter: 2018Q1

REPORT INFORMATION
  Report Type: Spontaneous
  Country: GB (occurrence: GB)
  Receive Date: 20180110
  Receipt Date: 20180207
  Transmission Date: 20180509
  Serious: Yes (Hospitalization, Other)
  Sender: FDA-Public Use
  Company Number: GB-ASTELLAS-2018US001105

PATIENT
  Age: 68 Year
  Sex: Female

DRUGS (2)
  1. TACROLIMUS. [Suspect]
     Active Substance: TACROLIMUS
     Indication: RENAL TRANSPLANT
     Route: 065
  2. PREDNISOLONE. [Concomitant]
     Active Substance: PREDNISOLONE
     Indication: RENAL TRANSPLANT
     Route: 065

REACTIONS (12)
  - Fat embolism [Unknown]
  - Inferior vena caval occlusion [Unknown]
  - Transplant dysfunction [Recovering/Resolving]
  - Clear cell renal cell carcinoma [Recovered/Resolved]
  - Vena cava embolism [Unknown]
  - Deep vein thrombosis [Unknown]
  - Renovascular hypertension [Unknown]
  - Iliac vein occlusion [Unknown]
  - Acute kidney injury [Unknown]
  - Infarction [Unknown]
  - Venous thrombosis [Unknown]
  - Metastases to bone [Recovered/Resolved]
